FAERS Safety Report 26111978 (Version 1)
Quarter: 2025Q4

REPORT INFORMATION
  Report Type: Spontaneous
  Country: PK (occurrence: PK)
  Receive Date: 20251202
  Receipt Date: 20251202
  Transmission Date: 20260117
  Serious: Yes (Death, Other)
  Sender: Onesource Specialty Pharma
  Company Number: PK-STRIDES ARCOLAB LIMITED-2025OS001328

PATIENT

DRUGS (3)
  1. CYCLOSPORINE [Suspect]
     Active Substance: CYCLOSPORINE
     Indication: Prophylaxis against graft versus host disease
     Dosage: MYELOABLATIVE CONDITIONING
     Route: 065
  2. BUSULFAN [Suspect]
     Active Substance: BUSULFAN
     Indication: Prophylaxis against graft versus host disease
     Dosage: MYELOABLATIVE CONDITIONING
     Route: 065
  3. FLUDARABINE [Suspect]
     Active Substance: FLUDARABINE PHOSPHATE
     Indication: Prophylaxis against graft versus host disease
     Dosage: MYELOABLATIVE CONDITIONING
     Route: 065

REACTIONS (2)
  - Drug ineffective for unapproved indication [Fatal]
  - Sepsis [Fatal]
